FAERS Safety Report 20847192 (Version 2)
Quarter: 2022Q2

REPORT INFORMATION
  Report Type: Report from Study
  Country: ES (occurrence: None)
  Receive Date: 20220519
  Receipt Date: 20220524
  Transmission Date: 20220721
  Serious: Yes (Hospitalization)
  Sender: FDA-Public Use
  Company Number: ES-ROCHE-3096880

PATIENT
  Age: 61 Year
  Sex: Male
  Weight: 57 kg

DRUGS (3)
  1. ATEZOLIZUMAB [Suspect]
     Active Substance: ATEZOLIZUMAB
     Indication: Renal cell carcinoma
     Dosage: DATE OF MOST RECENT DOSE OF ATEZOLIZUMAB ADMINISTERED PRIOR TO THE ONSET OF SERIOUS ADVERSE EVENT ON
     Route: 041
     Dates: start: 20211130
  2. CABOZANTINIB [Suspect]
     Active Substance: CABOZANTINIB
     Indication: Renal cell carcinoma
     Dosage: DATE OF MOST RECENT DOSE OF CABOZANTINIB ADMINISTERED PRIOR TO THE ONSET OF SERIOUS ADVERSE EVENT ON
     Route: 048
     Dates: start: 20211130
  3. METHIMAZOLE [Suspect]
     Active Substance: METHIMAZOLE
     Indication: Product used for unknown indication
     Route: 065

REACTIONS (1)
  - Hepatitis [Recovering/Resolving]

NARRATIVE: CASE EVENT DATE: 20220510
